FAERS Safety Report 7691338-3 (Version None)
Quarter: 2011Q3

REPORT INFORMATION
  Report Type: 
  Country: None (occurrence: None)
  Receive Date: 20110818
  Receipt Date: 20110808
  Transmission Date: 20111222
  Serious: Yes (Other)
  Sender: FDA-Public Use
  Company Number: PHHY2011US67151

PATIENT
  Age: 56 Year
  Sex: Female
  Weight: 78.458 kg

DRUGS (8)
  1. VAGIFEM [Concomitant]
  2. SYNTHROID [Concomitant]
  3. CENESTIN [Concomitant]
  4. FLUCONAZOLE [Concomitant]
  5. DIOVAN HCT [Concomitant]
  6. NASONEX [Concomitant]
  7. TASIGNA [Suspect]
     Indication: CHRONIC MYELOID LEUKAEMIA
     Dosage: 400 MG, Q12H
     Route: 048
     Dates: start: 20100301
  8. SUDAFED 12 HOUR [Concomitant]

REACTIONS (3)
  - WHITE BLOOD CELL COUNT INCREASED [None]
  - CHRONIC MYELOID LEUKAEMIA [None]
  - PLATELET COUNT INCREASED [None]
